FAERS Safety Report 16208398 (Version 7)
Quarter: 2020Q2

REPORT INFORMATION
  Report Type: Spontaneous
  Country: DE (occurrence: DE)
  Receive Date: 20190417
  Receipt Date: 20200506
  Transmission Date: 20200713
  Serious: Yes (Life-Threatening, Hospitalization, Other)
  Sender: FDA-Public Use
  Company Number: PHHY2019DE086665

PATIENT
  Age: 22 Year
  Sex: Female

DRUGS (3)
  1. ORTOTON [METHOCARBAMOL] [Suspect]
     Active Substance: METHOCARBAMOL
     Indication: MUSCLE TIGHTNESS
     Dosage: 6 DF, QD (2 DF, TID, ERSTMALIGE ANWENDUNG)
     Route: 048
     Dates: start: 20190327, end: 20190327
  2. DICLO 25 - 1 A PHARMA [Suspect]
     Active Substance: DICLOFENAC SODIUM
     Indication: PRODUCT USED FOR UNKNOWN INDICATION
     Dosage: 3 DF, QD (1 DF, TID, SINGLE APPLICATION, EINMALIGE ANWENDUNG)
     Route: 048
     Dates: start: 20190327, end: 20190327
  3. ORTOTON [METHOCARBAMOL] [Suspect]
     Active Substance: METHOCARBAMOL
     Indication: NECK PAIN
     Dosage: UNK
     Route: 065

REACTIONS (3)
  - Seizure [Recovered/Resolved]
  - Loss of consciousness [Recovered/Resolved]
  - Syncope [Recovered/Resolved]

NARRATIVE: CASE EVENT DATE: 20190327
